FAERS Safety Report 8830785 (Version 2)
Quarter: 2012Q4

REPORT INFORMATION
  Report Type: 
  Country: BR (occurrence: BR)
  Receive Date: 20121008
  Receipt Date: 20121102
  Transmission Date: 20130627
  Serious: Yes (Death, Other)
  Sender: FDA-Public Use
  Company Number: BR-PFIZER INC-2012054862

PATIENT
  Age: 61 Year
  Sex: Female
  Weight: 55 kg

DRUGS (6)
  1. SUTENT [Suspect]
     Indication: PANCREATIC NEUROENDOCRINE TUMOR
     Dosage: 37.5 mg, 1x/day (continue use)
     Route: 048
     Dates: start: 20120207, end: 201203
  2. SUTENT [Suspect]
     Indication: NEUROENDOCRINE TUMOR
  3. NEXIUM [Concomitant]
     Indication: REFLUX GASTRITIS
     Dosage: 40 mg, 1x/day (in the morning)
  4. MYTEDON [Concomitant]
     Indication: PAIN
     Dosage: 5 mg, as needed
  5. LEXAPRO [Concomitant]
     Indication: DEPRESSION
     Dosage: 5 mg, 1x/day (at night)
  6. FRONTAL [Concomitant]
     Indication: SEDATIVE THERAPY
     Dosage: 1 mg, 1x/day (at night)

REACTIONS (6)
  - Death [Fatal]
  - Platelet count decreased [Unknown]
  - Oral pain [Not Recovered/Not Resolved]
  - Somnolence [Unknown]
  - Asthenia [Not Recovered/Not Resolved]
  - Dysphagia [Not Recovered/Not Resolved]
